FAERS Safety Report 8336887-X (Version None)
Quarter: 2012Q2

REPORT INFORMATION
  Report Type: 
  Country: None (occurrence: None)
  Receive Date: 20120504
  Receipt Date: 20120420
  Transmission Date: 20120825
  Serious: Yes (Other)
  Sender: FDA-Public Use
  Company Number: PHHY2012IN037172

PATIENT

DRUGS (3)
  1. DEXAMETHASONE [Suspect]
     Indication: MULTIPLE MYELOMA
     Dosage: 20 MG FRO DAY 1 TO 4 AND 9 TO 12
  2. ZOLEDRONIC [Suspect]
     Indication: MULTIPLE MYELOMA
     Dosage: UNK UKN, UNK
  3. LENALIDOMIDE [Suspect]
     Indication: MULTIPLE MYELOMA
     Dosage: 25 MG TO 21 OF A 28-DAY CYCLE DAILY

REACTIONS (1)
  - AUTOIMMUNE THROMBOCYTOPENIA [None]
